FAERS Safety Report 4718698-7 (Version None)
Quarter: 2005Q3

REPORT INFORMATION
  Report Type: 
  Country: None (occurrence: None)
  Receive Date: 20050719
  Receipt Date: 20050708
  Transmission Date: 20060218
  Serious: Yes (Hospitalization, Other)
  Sender: FDA-Public Use
  Company Number: KII-2005-0017415

PATIENT
  Age: 28 Year
  Sex: Male

DRUGS (5)
  1. OXYCODONE HCL [Suspect]
     Dosage: ORAL
     Route: 048
  2. HEROIN (DIAMORPHINE) [Suspect]
  3. COCAINE (COCAINE) [Suspect]
  4. MUSHROOM:  HALLUCINOGENIC () [Suspect]
  5. BENZODIAZEPINE DERIVATIVES () [Suspect]

REACTIONS (14)
  - ABNORMAL BEHAVIOUR [None]
  - AGITATION [None]
  - CONFUSIONAL STATE [None]
  - DEPRESSED LEVEL OF CONSCIOUSNESS [None]
  - DISORIENTATION [None]
  - DRUG SCREEN POSITIVE [None]
  - HYPERTENSION [None]
  - INFECTION [None]
  - MIOSIS [None]
  - MOANING [None]
  - PILONIDAL CYST [None]
  - POLYSUBSTANCE ABUSE [None]
  - PUPIL FIXED [None]
  - SINUS TACHYCARDIA [None]
